FAERS Safety Report 11526865 (Version 1)
Quarter: 2015Q3

REPORT INFORMATION
  Report Type: Spontaneous
  Country: US (occurrence: US)
  Receive Date: 20150903
  Receipt Date: 20150903
  Transmission Date: 20151125
  Serious: No
  Sender: FDA-Public Use
  Company Number: US-ELI_LILLY_AND_COMPANY-US201404005013

PATIENT
  Sex: Male

DRUGS (1)
  1. DULOXETINE HYDROCHLORIDE. [Suspect]
     Active Substance: DULOXETINE HYDROCHLORIDE
     Indication: MUSCLE TIGHTNESS
     Dosage: 60 MG, UNKNOWN
     Route: 065
     Dates: start: 2006

REACTIONS (2)
  - Drug ineffective [Unknown]
  - Off label use [Unknown]
